FAERS Safety Report 4877037-1 (Version None)
Quarter: 2005Q4

REPORT INFORMATION
  Report Type: 
  Country: None (occurrence: None)
  Receive Date: 20051206
  Receipt Date: 20050912
  Transmission Date: 20060501
  Serious: No
  Sender: FDA-Public Use
  Company Number: USA0508105862

PATIENT
  Age: 66 Year
  Sex: Male
  Weight: 127.0072 kg

DRUGS (23)
  1. CYMBALTA [Suspect]
     Indication: ANXIETY
     Dosage: 30 MG
     Dates: start: 20050811
  2. CYMBALTA [Suspect]
     Indication: DEPRESSION
     Dosage: 30 MG
     Dates: start: 20050811
  3. COUMADIN [Concomitant]
  4. AMIODARONE [Concomitant]
  5. ASPIRIN [Concomitant]
  6. CATAPRES-TTS-1 [Concomitant]
  7. CARDIZEM [Concomitant]
  8. LIPITOR [Concomitant]
  9. LIORESAL [Concomitant]
  10. GLUCOTROL [Concomitant]
  11. NEURONTIN [Concomitant]
  12. LANTUS [Concomitant]
  13. LEVOTHYROXINE SODIUM [Concomitant]
  14. ACIPHEX [Concomitant]
  15. FLOMAX [Concomitant]
  16. MS CONTIN [Concomitant]
  17. DILAUDID [Concomitant]
  18. NULYTELY [Concomitant]
  19. COMBIVENT [Concomitant]
  20. FLOVENT [Concomitant]
  21. SENNA [Concomitant]
  22. LANOXIN [Concomitant]
  23. PLAVIX [Concomitant]

REACTIONS (1)
  - INTERNATIONAL NORMALISED RATIO INCREASED [None]
